FAERS Safety Report 6847530-0 (Version None)
Quarter: 2010Q3

REPORT INFORMATION
  Report Type: 
  Country: None (occurrence: None)
  Receive Date: 20100716
  Receipt Date: 20100706
  Transmission Date: 20110219
  Serious: Yes (Other)
  Sender: FDA-Public Use
  Company Number: US-PFIZER INC-2010084904

PATIENT
  Sex: Male
  Weight: 81.633 kg

DRUGS (1)
  1. VIAGRA [Suspect]
     Dosage: 200 MG, AS NEEDED
     Route: 048
     Dates: start: 20100704, end: 20100705

REACTIONS (8)
  - DRUG INEFFECTIVE [None]
  - DYSPNOEA [None]
  - FEELING HOT [None]
  - FLUSHING [None]
  - HYPERHIDROSIS [None]
  - INCORRECT DOSE ADMINISTERED [None]
  - NASAL CONGESTION [None]
  - VISUAL IMPAIRMENT [None]
